FAERS Safety Report 4309428-1 (Version None)
Quarter: 2004Q1

REPORT INFORMATION
  Report Type: 
  Country: None (occurrence: None)
  Receive Date: 20040302
  Receipt Date: 20040223
  Transmission Date: 20041129
  Serious: Yes (Life-Threatening, Other)
  Sender: FDA-Public Use
  Company Number: PHFR2004GB01101

PATIENT
  Age: 55 Year
  Sex: Male

DRUGS (5)
  1. BACLOFEN [Suspect]
     Indication: MUSCLE SPASTICITY
     Dosage: 80MG/DAY
     Route: 048
     Dates: start: 20040101, end: 20040207
  2. GABAPENTIN [Concomitant]
     Indication: NEUROPATHIC PAIN
     Dosage: 300MG/DAY
     Route: 048
     Dates: start: 20040101
  3. MOVICOL [Concomitant]
     Indication: CONSTIPATION
     Dosage: 1 SACHET/DAY
     Route: 048
     Dates: start: 20031201
  4. SALBUTAMOL [Concomitant]
     Indication: DYSPNOEA
     Dosage: 2.5ML/DAY
     Dates: start: 20031201
  5. VITAMIN C [Concomitant]
     Dosage: 500MG/DAY
     Route: 048

REACTIONS (2)
  - BRADYCARDIA [None]
  - DIZZINESS [None]
